FAERS Safety Report 6500870-7 (Version None)
Quarter: 2009Q4

REPORT INFORMATION
  Report Type: 
  Country: None (occurrence: None)
  Receive Date: 20091216
  Receipt Date: 20090421
  Transmission Date: 20100525
  Serious: No
  Sender: FDA-Public Use
  Company Number: A0776554A

PATIENT
  Age: 68 Year
  Sex: Female

DRUGS (1)
  1. COMMIT [Suspect]
     Route: 002

REACTIONS (5)
  - ABDOMINAL DISCOMFORT [None]
  - GINGIVAL PAIN [None]
  - HEADACHE [None]
  - NERVOUSNESS [None]
  - THROAT IRRITATION [None]
